FAERS Safety Report 5635896-9 (Version None)
Quarter: 2008Q1

REPORT INFORMATION
  Report Type: 
  Country: None (occurrence: None)
  Receive Date: 20080221
  Receipt Date: 20080214
  Transmission Date: 20080703
  Serious: Yes (Hospitalization, Other)
  Sender: FDA-Public Use
  Company Number: 2008AP000331

PATIENT
  Age: 58 Year
  Sex: Female

DRUGS (10)
  1. PAROXETINE HCL [Suspect]
     Indication: OBSESSIVE-COMPULSIVE DISORDER
     Dosage: 60 MG; TAB; PO; QD
     Route: 048
  2. SIMVASTATIN [Concomitant]
  3. OMEPRAZOLE [Concomitant]
  4. MIDAZOLAM HCL [Concomitant]
  5. PROPOFOL [Concomitant]
  6. FENTANYL [Concomitant]
  7. ROCURONIUM BROMIDE (ROCURONIUM BROMIDE) [Concomitant]
  8. SEVOFLURANE [Concomitant]
  9. ATROPINE [Concomitant]
  10. NEOSTIGMINE (NEOSTIGMINE) [Concomitant]

REACTIONS (15)
  - AGITATION [None]
  - ANXIETY [None]
  - CONFUSIONAL STATE [None]
  - DISORIENTATION [None]
  - DRUG INTERACTION [None]
  - DYSKINESIA [None]
  - DYSTONIA [None]
  - EYE MOVEMENT DISORDER [None]
  - FEAR [None]
  - HYPERTONIA [None]
  - HYPOTENSION [None]
  - LOSS OF CONSCIOUSNESS [None]
  - PARATHYROID TUMOUR BENIGN [None]
  - SEROTONIN SYNDROME [None]
  - TACHYCARDIA [None]
